FAERS Safety Report 9691053 (Version 3)
Quarter: 2014Q2

REPORT INFORMATION
  Report Type: Spontaneous
  Country: PR (occurrence: PR)
  Receive Date: 20131115
  Receipt Date: 20140428
  Transmission Date: 20141212
  Serious: No
  Sender: FDA-Public Use
  Company Number: PR-009507513-1311USA000874

PATIENT
  Sex: Male

DRUGS (8)
  1. PEGINTERFERON ALFA-2B [Suspect]
     Indication: HEPATITIS C
     Dosage: REDIPEN, 0.5 ML, Q 7 DAYS
     Dates: start: 20130918
  2. RIBAVIRIN [Suspect]
     Indication: HEPATITIS C
     Dosage: 400 MG, BID (TWICE A DAY)
     Route: 048
     Dates: start: 20130918
  3. OMEPRAZOLE [Concomitant]
     Dosage: UNK, QD
     Route: 048
  4. ASCORBIC ACID [Concomitant]
     Dosage: UNK, QD
  5. CYANOCOBALAMIN [Concomitant]
     Dosage: UNK, QD
  6. IRON (UNSPECIFIED) [Concomitant]
     Dosage: UNK, QD
  7. METFORMIN [Concomitant]
  8. GLIPIZIDE [Concomitant]

REACTIONS (15)
  - Feeling cold [Unknown]
  - Chills [Unknown]
  - Asthenia [Unknown]
  - Malaise [Unknown]
  - Pyrexia [Unknown]
  - Depression [Unknown]
  - Nervousness [Unknown]
  - Abdominal pain upper [Unknown]
  - Alopecia [Unknown]
  - Haemoglobin decreased [Unknown]
  - Eating disorder [Unknown]
  - Decreased appetite [Unknown]
  - Hepatic enzyme increased [Recovering/Resolving]
  - Liver disorder [Recovering/Resolving]
  - Gallbladder disorder [Recovering/Resolving]
